APPROVED DRUG PRODUCT: LONSURF
Active Ingredient: TIPIRACIL HYDROCHLORIDE; TRIFLURIDINE
Strength: EQ 6.14MG BASE;15MG
Dosage Form/Route: TABLET;ORAL
Application: N207981 | Product #001 | TE Code: AB
Applicant: TAIHO ONCOLOGY INC
Approved: Sep 22, 2015 | RLD: Yes | RS: No | Type: RX

PATENTS:
Patent RE46284 | Expires: Sep 22, 2029
Patent RE46284 | Expires: Sep 22, 2029
Patent RE46284 | Expires: Sep 22, 2029
Patent 10456399 | Expires: Feb 3, 2037
Patent 10456399 | Expires: Feb 3, 2037
Patent 10960004 | Expires: Feb 3, 2037
Patent 10960004 | Expires: Feb 3, 2037
Patent 9943537 | Expires: Sep 5, 2034
Patent 9527833 | Expires: Jun 17, 2034
Patent 10457666 | Expires: Jun 17, 2034

EXCLUSIVITY:
Code: ODE-229 | Date: Feb 22, 2026